FAERS Safety Report 19346946 (Version 6)
Quarter: 2021Q4

REPORT INFORMATION
  Report Type: Report from Study
  Country: US (occurrence: US)
  Receive Date: 20210531
  Receipt Date: 20211008
  Transmission Date: 20220303
  Serious: Yes (Other)
  Sender: FDA-Public Use
  Company Number: US-UCBSA-2021024561

PATIENT
  Age: 19 Year
  Sex: Male

DRUGS (3)
  1. MIDAZOLAM [Suspect]
     Active Substance: MIDAZOLAM
     Indication: Seizure
     Dosage: 5 MILLIGRAM, AS NEEDED (PRN)
  2. VIMPAT [Suspect]
     Active Substance: LACOSAMIDE
     Indication: Seizure
     Dosage: 100 MILLIGRAM, 2X/DAY (BID)
     Dates: start: 20210505, end: 2021
  3. VIMPAT [Suspect]
     Active Substance: LACOSAMIDE
     Dosage: 200MG MORNING, 100MG AFTERNOON AND 200MG EVENING, 3X/DAY (TID)
     Dates: start: 2021

REACTIONS (8)
  - Seizure cluster [Not Recovered/Not Resolved]
  - Seizure [Not Recovered/Not Resolved]
  - Neoplasm [Unknown]
  - Change in seizure presentation [Unknown]
  - Off label use [Unknown]
  - Overdose [Unknown]
  - COVID-19 [Not Recovered/Not Resolved]
  - Drug ineffective [Unknown]

NARRATIVE: CASE EVENT DATE: 20210520
